FAERS Safety Report 8156471-0 (Version None)
Quarter: 2012Q1

REPORT INFORMATION
  Report Type: 
  Country: None (occurrence: None)
  Receive Date: 20120103
  Receipt Date: 20111116
  Transmission Date: 20120608
  Serious: No
  Sender: FDA-Public Use
  Company Number: AE-2011-002678

PATIENT
  Age: 62 Year
  Sex: Female
  Weight: 43.9989 kg

DRUGS (5)
  1. CELEBREX [Concomitant]
  2. RIBAVIRIN [Concomitant]
  3. PEGINTERFERON (PEGINTERFERON ALFA-2A) [Concomitant]
  4. PROZAC [Concomitant]
  5. INCIVEK [Suspect]
     Dosage: 2250 MG (750 MG, 1 IN 8 HR), ORAL
     Route: 048
     Dates: start: 20111024

REACTIONS (5)
  - RASH [None]
  - PYREXIA [None]
  - ABDOMINAL PAIN UPPER [None]
  - DIARRHOEA [None]
  - ARTHRALGIA [None]
